FAERS Safety Report 7970614-0 (Version None)
Quarter: 2011Q4

REPORT INFORMATION
  Report Type: 
  Country: None (occurrence: None)
  Receive Date: 20111212
  Receipt Date: 20111205
  Transmission Date: 20120403
  Serious: Yes (Other)
  Sender: FDA-Public Use
  Company Number: DE-B.I. PHARMACEUTICALS,INC./RIDGEFIELD-2011-DE-06647DE

PATIENT
  Sex: Male

DRUGS (4)
  1. SPIRIVA [Suspect]
  2. INHALATIVE KORTISON [Concomitant]
  3. FORMOTEROL FUMARATE [Concomitant]
  4. TETANUS IMMUNE GLOBULIN (HUMAN) [Concomitant]

REACTIONS (8)
  - VOMITING [None]
  - PULMONARY EMBOLISM [None]
  - DIARRHOEA [None]
  - BALANCE DISORDER [None]
  - DIZZINESS [None]
  - VISION BLURRED [None]
  - CARDIAC DISORDER [None]
  - HYPERHIDROSIS [None]
